FAERS Safety Report 9508202 (Version 1)
Quarter: 2013Q3

REPORT INFORMATION
  Report Type: Spontaneous
  Country: US (occurrence: None)
  Receive Date: 20130906
  Receipt Date: 20130906
  Transmission Date: 20140515
  Serious: Yes (Hospitalization)
  Sender: FDA-Public Use
  Company Number: None

PATIENT
  Age: 45 Year
  Sex: Female

DRUGS (14)
  1. ABILIFY [Suspect]
     Indication: BIPOLAR DISORDER
     Route: 048
     Dates: start: 20120502, end: 20130326
  2. FISH OIL [Concomitant]
  3. FLUTICASONE NASAL SPRAY [Concomitant]
  4. MULTIVITAMINS WITH MINERALS [Concomitant]
  5. LORATADINE [Concomitant]
  6. OSCAL-D [Concomitant]
  7. MAG OXIDE [Concomitant]
  8. RANITADINE [Concomitant]
  9. DEPAKOTE SPRINKLES [Concomitant]
  10. ALENDRONATE [Concomitant]
  11. ROPINEROLE [Concomitant]
  12. VIT D [Concomitant]
  13. LACOSAMIDE [Concomitant]
  14. IBUPROFEN [Concomitant]

REACTIONS (1)
  - Dystonia [None]
